FAERS Safety Report 9321452 (Version 1)
Quarter: 2013Q2

REPORT INFORMATION
  Report Type: Spontaneous
  Country: IT (occurrence: IT)
  Receive Date: 20130531
  Receipt Date: 20130531
  Transmission Date: 20140414
  Serious: Yes (Other)
  Sender: FDA-Public Use
  Company Number: IT-PERRIGO-13IT005600

PATIENT
  Sex: Male

DRUGS (2)
  1. ACET [Suspect]
     Indication: CIRCUMCISION
     Dosage: 156 MG/KG, QD
     Route: 048
  2. ACET [Suspect]
     Dosage: 78 MG/KG, QD
     Route: 048

REACTIONS (5)
  - Encephalopathy [Recovered/Resolved]
  - Toxicity to various agents [Recovered/Resolved]
  - Hepatotoxicity [Recovered/Resolved]
  - Aspartate aminotransferase increased [None]
  - Alanine aminotransferase increased [None]
